FAERS Safety Report 24056703 (Version 2)
Quarter: 2024Q3

REPORT INFORMATION
  Report Type: Spontaneous
  Country: US (occurrence: US)
  Receive Date: 20240705
  Receipt Date: 20240925
  Transmission Date: 20241017
  Serious: Yes (Other)
  Sender: MERCK
  Company Number: US-009507513-2407USA000409

PATIENT
  Age: 67 Year
  Sex: Male
  Weight: 87.9 kg

DRUGS (8)
  1. KEYTRUDA [Suspect]
     Active Substance: PEMBROLIZUMAB
     Indication: Metastatic malignant melanoma
     Dosage: UNK
     Dates: start: 2018
  2. NIVOLUMAB [Suspect]
     Active Substance: NIVOLUMAB
     Indication: Metastatic malignant melanoma
     Dosage: UNK
     Dates: end: 201612
  3. IPILIMUMAB [Suspect]
     Active Substance: IPILIMUMAB
     Indication: Metastatic malignant melanoma
     Dosage: UNK
  4. METFORMIN [Concomitant]
     Active Substance: METFORMIN HYDROCHLORIDE
     Dosage: UNK
  5. INSULIN HUMAN [Concomitant]
     Active Substance: INSULIN HUMAN
     Dosage: 0.1 UNITS/KG/DAY
  6. INSULIN HUMAN [Concomitant]
     Active Substance: INSULIN HUMAN
     Dosage: 1.3 UNITS/KG/DAY
  7. OMEGA-3 FATTY ACIDS [Concomitant]
     Active Substance: OMEGA-3 FATTY ACIDS
     Dosage: UNK
  8. PIOGLITAZONE [Concomitant]
     Active Substance: PIOGLITAZONE
     Indication: Insulin resistance
     Dosage: UNK

REACTIONS (2)
  - Acquired generalised lipodystrophy [Unknown]
  - Hypopituitarism [Unknown]

NARRATIVE: CASE EVENT DATE: 20181201
